FAERS Safety Report 13339168 (Version 1)
Quarter: 2017Q1

REPORT INFORMATION
  Report Type: Spontaneous
  Country: US (occurrence: US)
  Receive Date: 20170315
  Receipt Date: 20170315
  Transmission Date: 20170428
  Serious: Yes (Hospitalization)
  Sender: FDA-Public Use
  Company Number: US-PFIZER INC-2017107040

PATIENT
  Sex: Male

DRUGS (5)
  1. SUBOXONE [Suspect]
     Active Substance: BUPRENORPHINE HYDROCHLORIDE\NALOXONE HYDROCHLORIDE
     Dosage: UNK
  2. LYRICA [Suspect]
     Active Substance: PREGABALIN
     Indication: FIBROMYALGIA
     Dosage: 300 MG, 4X/DAY
  3. LYRICA [Suspect]
     Active Substance: PREGABALIN
     Dosage: 600 MG, DAILY
  4. NAPROXEN. [Suspect]
     Active Substance: NAPROXEN
     Dosage: UNK
  5. LYRICA [Suspect]
     Active Substance: PREGABALIN
     Indication: SEIZURE
     Dosage: UNK
     Dates: start: 2004

REACTIONS (7)
  - Visual impairment [Unknown]
  - Malaise [Unknown]
  - Feeding disorder [Unknown]
  - Speech disorder [Unknown]
  - Hallucination, auditory [Unknown]
  - Nausea [Unknown]
  - Prescribed overdose [Unknown]
